FAERS Safety Report 17584541 (Version 12)
Quarter: 2024Q1

REPORT INFORMATION
  Report Type: Spontaneous
  Country: US (occurrence: US)
  Receive Date: 20200326
  Receipt Date: 20240212
  Transmission Date: 20240410
  Serious: Yes (Other)
  Sender: FDA-Public Use
  Company Number: US-PFIZER INC-2020124951

PATIENT
  Age: 84 Year
  Sex: Female

DRUGS (5)
  1. XELJANZ XR [Suspect]
     Active Substance: TOFACITINIB CITRATE
     Dosage: 11 MG, DAILY
     Route: 048
  2. LEVOTHYROXINE [Concomitant]
     Active Substance: LEVOTHYROXINE\LEVOTHYROXINE SODIUM
  3. LOSARTAN [Concomitant]
     Active Substance: LOSARTAN
  4. TIMOLOL [Concomitant]
     Active Substance: TIMOLOL
  5. METOPROLOL [Concomitant]
     Active Substance: METOPROLOL

REACTIONS (8)
  - Rheumatoid arthritis [Unknown]
  - Hypoacusis [Unknown]
  - Pain in extremity [Unknown]
  - Blood pressure abnormal [Unknown]
  - Peripheral swelling [Unknown]
  - Pain [Not Recovered/Not Resolved]
  - Nervousness [Unknown]
  - Mental disorder [Not Recovered/Not Resolved]
